FAERS Safety Report 8124720-0 (Version None)
Quarter: 2012Q1

REPORT INFORMATION
  Report Type: 
  Country: None (occurrence: None)
  Receive Date: 20120209
  Receipt Date: 20120118
  Transmission Date: 20120608
  Serious: No
  Sender: FDA-Public Use
  Company Number: US-BAYER-2012-010667

PATIENT
  Age: 64 Year
  Sex: Female
  Weight: 68 kg

DRUGS (2)
  1. BAYER AM EXTRA STRENGTH [Suspect]
     Indication: MYALGIA
     Dosage: 2 DF, QD
     Route: 048
     Dates: end: 20111201
  2. ASPIRIN [Suspect]
     Indication: ISCHAEMIC HEART DISEASE PROPHYLAXIS
     Dosage: 1 DF, QD
     Route: 048
     Dates: end: 20100101

REACTIONS (1)
  - NO ADVERSE EVENT [None]
